FAERS Safety Report 7656038-4 (Version None)
Quarter: 2011Q3

REPORT INFORMATION
  Report Type: 
  Country: None (occurrence: None)
  Receive Date: 20110804
  Receipt Date: 20110726
  Transmission Date: 20111222
  Serious: No
  Sender: FDA-Public Use
  Company Number: KR-ELI_LILLY_AND_COMPANY-KR201107007173

PATIENT
  Sex: Male

DRUGS (1)
  1. CIALIS [Suspect]
     Dosage: 5 MG, UNK
     Route: 048
     Dates: start: 20110722, end: 20110725

REACTIONS (3)
  - CHEST PAIN [None]
  - PAIN [None]
  - VISION BLURRED [None]
